FAERS Safety Report 7068705-4 (Version None)
Quarter: 2010Q4

REPORT INFORMATION
  Report Type: 
  Country: None (occurrence: None)
  Receive Date: 20101028
  Receipt Date: 20101022
  Transmission Date: 20110411
  Serious: Yes (Other)
  Sender: FDA-Public Use
  Company Number: CN-PFIZER INC-2010134954

PATIENT
  Age: 68 Year
  Sex: Female

DRUGS (4)
  1. CAMPTOSAR [Suspect]
     Indication: RECTAL CANCER
     Dosage: 150 MG/M2, SINGLE
     Route: 041
     Dates: start: 20101022, end: 20101022
  2. TEGAFUR [Concomitant]
     Indication: RECTAL CANCER
     Dosage: UNK
     Dates: start: 20101001
  3. CALCIUM FOLINATE [Concomitant]
     Indication: RECTAL CANCER
     Dosage: UNK
     Dates: start: 20101001
  4. ONDANSETRON [Concomitant]
     Indication: RECTAL CANCER
     Dosage: UNK
     Dates: start: 20101001

REACTIONS (3)
  - MUSCLE TWITCHING [None]
  - PALPITATIONS [None]
  - SINUS TACHYCARDIA [None]
